FAERS Safety Report 12487215 (Version 1)
Quarter: 2016Q2

REPORT INFORMATION
  Report Type: Spontaneous
  Country: IT (occurrence: IT)
  Receive Date: 20160622
  Receipt Date: 20160622
  Transmission Date: 20160815
  Serious: Yes (Other)
  Sender: FDA-Public Use
  Company Number: IT-GILEAD-2016-0219331

PATIENT
  Age: 60 Year
  Sex: Female

DRUGS (2)
  1. HARVONI [Suspect]
     Active Substance: LEDIPASVIR\SOFOSBUVIR
     Indication: CHRONIC HEPATITIS C
     Dosage: 1 DF, QD
     Route: 048
     Dates: start: 20160301, end: 20160510
  2. COMBISARTAN [Concomitant]
     Active Substance: HYDROCHLOROTHIAZIDE\VALSARTAN

REACTIONS (2)
  - Headache [Not Recovered/Not Resolved]
  - Feeling cold [Not Recovered/Not Resolved]

NARRATIVE: CASE EVENT DATE: 20160301
